FAERS Safety Report 7487420-6 (Version None)
Quarter: 2011Q2

REPORT INFORMATION
  Report Type: 
  Country: None (occurrence: None)
  Receive Date: 20110518
  Receipt Date: 20110503
  Transmission Date: 20111010
  Serious: Yes (Other)
  Sender: FDA-Public Use
  Company Number: US-JNJFOC-20110502106

PATIENT
  Age: 7 Year
  Sex: Female
  Weight: 34.02 kg

DRUGS (4)
  1. TOPIRAMATE [Suspect]
     Indication: TIC
     Route: 048
     Dates: end: 20101201
  2. STRATTERA [Suspect]
     Indication: ATTENTION DEFICIT/HYPERACTIVITY DISORDER
     Route: 048
     Dates: start: 20110201, end: 20110401
  3. TOPAMAX [Suspect]
     Route: 048
     Dates: start: 20060101
  4. TOPAMAX [Suspect]
     Indication: TIC
     Route: 048

REACTIONS (6)
  - PARAESTHESIA [None]
  - AGGRESSION [None]
  - HEADACHE [None]
  - ANGER [None]
  - AMNESIA [None]
  - ATTENTION DEFICIT/HYPERACTIVITY DISORDER [None]
